FAERS Safety Report 9278773 (Version 1)
Quarter: 2013Q2

REPORT INFORMATION
  Report Type: Spontaneous
  Country: JP (occurrence: None)
  Receive Date: 20130501
  Receipt Date: 20130501
  Transmission Date: 20140414
  Serious: Yes (Hospitalization, Other)
  Sender: FDA-Public Use
  Company Number: 2013P1005002

PATIENT
  Age: 15 Year
  Sex: Female
  Weight: 53.8 kg

DRUGS (2)
  1. CEFTRIAXONE [Suspect]
     Indication: MENINGITIS
  2. CEFTRIAXONE [Suspect]
     Indication: SHUNT INFECTION

REACTIONS (7)
  - Cholelithiasis [None]
  - Pyrexia [None]
  - Abdominal pain upper [None]
  - Alanine aminotransferase increased [None]
  - Aspartate aminotransferase increased [None]
  - Blood lactate dehydrogenase increased [None]
  - Cholangitis [None]
